FAERS Safety Report 12605705 (Version 1)
Quarter: 2016Q3

REPORT INFORMATION
  Report Type: Spontaneous
  Country: US (occurrence: None)
  Receive Date: 20160728
  Receipt Date: 20160728
  Transmission Date: 20161109
  Serious: Yes (Other)
  Sender: FDA-Public Use
  Company Number: None

PATIENT

DRUGS (1)
  1. DOCUSATE SODIUM, 50 MG/5 ML [Suspect]
     Active Substance: DOCUSATE SODIUM

REACTIONS (2)
  - Product quality issue [None]
  - Burkholderia test positive [None]

NARRATIVE: CASE EVENT DATE: 20160722
